FAERS Safety Report 5993207-3 (Version None)
Quarter: 2008Q4

REPORT INFORMATION
  Report Type: 
  Country: None (occurrence: None)
  Receive Date: 20081212
  Receipt Date: 20081203
  Transmission Date: 20090506
  Serious: Yes (Hospitalization)
  Sender: FDA-Public Use
  Company Number: JP-ABBOTT-08P-087-0491994-00

PATIENT
  Age: 76 Year
  Sex: Male

DRUGS (7)
  1. LEUPROLIDE ACETATE [Suspect]
     Indication: PROSTATE CANCER STAGE II
     Route: 058
     Dates: start: 20061113, end: 20080811
  2. BICALUTAMIDE [Concomitant]
     Indication: PROSTATE CANCER STAGE II
     Route: 048
     Dates: end: 20070806
  3. PREDNISOLONE SODIUM PHOSPHATE [Concomitant]
     Indication: POLYARTERITIS NODOSA
     Route: 048
     Dates: end: 20080819
  4. OMEPRAZOLE SODIUM [Concomitant]
     Indication: REFLUX OESOPHAGITIS
     Route: 048
     Dates: end: 20061225
  5. SUCRALFATE [Concomitant]
     Indication: GASTRITIS
     Route: 048
     Dates: end: 20070423
  6. BROMHEXINE HYDROCHLORIDE [Concomitant]
     Indication: BRONCHITIS CHRONIC
     Route: 048
     Dates: end: 20061211
  7. CYCLOPHOSPHAMIDE [Concomitant]
     Indication: POLYARTERITIS NODOSA
     Route: 048
     Dates: start: 20070607, end: 20070801

REACTIONS (1)
  - PNEUMONIA [None]
